FAERS Safety Report 19515759 (Version 1)
Quarter: 2021Q3

REPORT INFORMATION
  Report Type: Spontaneous
  Country: US (occurrence: US)
  Receive Date: 20210709
  Receipt Date: 20210709
  Transmission Date: 20211014
  Serious: No
  Sender: FDA-Public Use
  Company Number: US-ASTELLAS-2020US026271

PATIENT
  Age: 69 Year
  Sex: Male

DRUGS (2)
  1. UROXATRAL [Concomitant]
     Active Substance: ALFUZOSIN HYDROCHLORIDE
     Indication: PRODUCT USED FOR UNKNOWN INDICATION
     Dosage: UNK UNK, UNKNOWN FREQ.
     Route: 065
  2. MYRBETRIQ [Suspect]
     Active Substance: MIRABEGRON
     Indication: PRODUCT USED FOR UNKNOWN INDICATION
     Route: 065
     Dates: start: 20200407, end: 20200708

REACTIONS (5)
  - Myalgia [Not Recovered/Not Resolved]
  - Abnormal sensation in eye [Unknown]
  - Burning sensation [Unknown]
  - Middle insomnia [Unknown]
  - Arthralgia [Recovering/Resolving]
